FAERS Safety Report 12143552 (Version 1)
Quarter: 2016Q1

REPORT INFORMATION
  Report Type: Spontaneous
  Country: US (occurrence: US)
  Receive Date: 20160304
  Receipt Date: 20160304
  Transmission Date: 20160526
  Serious: No
  Sender: FDA-Public Use
  Company Number: US-JNJFOC-20160205346

PATIENT
  Age: 39 Year
  Sex: Male
  Weight: 77.11 kg

DRUGS (2)
  1. MENS ROGAINE EXTRA STRENGTH [Suspect]
     Active Substance: MINOXIDIL
     Indication: ALOPECIA
     Dosage: 1/2 CAPFUL, 2 TIMES
     Route: 061
     Dates: start: 20160131, end: 20160201
  2. MENS ROGAINE EXTRA STRENGTH [Suspect]
     Active Substance: MINOXIDIL
     Route: 061

REACTIONS (4)
  - Application site pain [Recovered/Resolved]
  - Application site rash [Recovered/Resolved]
  - Application site ulcer [Recovered/Resolved]
  - Administration site scab [Recovered/Resolved]

NARRATIVE: CASE EVENT DATE: 20160201
